FAERS Safety Report 12782680 (Version 1)
Quarter: 2016Q3

REPORT INFORMATION
  Report Type: Spontaneous
  Country: US (occurrence: US)
  Receive Date: 20160927
  Receipt Date: 20160927
  Transmission Date: 20161109
  Serious: No
  Sender: FDA-Public Use
  Company Number: US-AMGEN-USASP2016129392

PATIENT
  Age: 47 Year
  Sex: Female

DRUGS (1)
  1. ENBREL [Suspect]
     Active Substance: ETANERCEPT
     Indication: RHEUMATOID ARTHRITIS
     Dosage: 50 MG, WEEKLY
     Route: 058

REACTIONS (7)
  - Arthropod bite [Unknown]
  - Erythema [Unknown]
  - Local swelling [Unknown]
  - Pyrexia [Unknown]
  - Malaise [Unknown]
  - Bronchitis [Unknown]
  - Sinusitis [Unknown]
